FAERS Safety Report 4643637-7 (Version None)
Quarter: 2005Q2

REPORT INFORMATION
  Report Type: 
  Country: None (occurrence: None)
  Receive Date: 20050425
  Receipt Date: 20041119
  Transmission Date: 20051028
  Serious: Yes (Death)
  Sender: FDA-Public Use
  Company Number: US-NOVOPROD-240637

PATIENT
  Age: 80 Year
  Sex: Male
  Weight: 80 kg

DRUGS (10)
  1. NOVOSEVEN [Suspect]
     Indication: AORTIC ANEURYSM RUPTURE
     Dosage: 4800 UG, SINGLE
     Route: 042
     Dates: start: 20041101, end: 20041101
  2. CRYSTALLOIDS [Concomitant]
     Indication: AORTIC ANEURYSM REPAIR
     Dosage: UNK
     Route: 042
     Dates: start: 20041101, end: 20041101
  3. RED BLOOD CELLS [Concomitant]
     Indication: AORTIC ANEURYSM REPAIR
     Dosage: UNK
     Route: 042
     Dates: start: 20041101, end: 20041101
  4. FRESH FROZEN PLASMA [Concomitant]
     Indication: AORTIC ANEURYSM REPAIR
     Dosage: UNK
     Route: 042
     Dates: start: 20041101, end: 20041101
  5. PLATELETS [Concomitant]
     Indication: AORTIC ANEURYSM REPAIR
     Dosage: UNK
     Route: 042
     Dates: start: 20041101, end: 20041101
  6. PEPCID [Concomitant]
     Indication: ILL-DEFINED DISORDER
  7. ANCEF [Concomitant]
     Indication: ILL-DEFINED DISORDER
  8. LOPRESSOR [Concomitant]
     Indication: ILL-DEFINED DISORDER
  9. VANCOMYCIN [Concomitant]
     Indication: ILL-DEFINED DISORDER
  10. INSULIN [Concomitant]
     Indication: DIABETES MELLITUS

REACTIONS (8)
  - COAGULOPATHY [None]
  - CONCOMITANT DISEASE PROGRESSION [None]
  - HAEMODIALYSIS [None]
  - HYPOPERFUSION [None]
  - HYPOTENSION [None]
  - OLIGURIA [None]
  - PHARMACEUTICAL PRODUCT COMPLAINT [None]
  - RENAL FAILURE ACUTE [None]
